FAERS Safety Report 12124599 (Version 2)
Quarter: 2016Q1

REPORT INFORMATION
  Report Type: Spontaneous
  Country: FR (occurrence: FR)
  Receive Date: 20160229
  Receipt Date: 20160317
  Transmission Date: 20160526
  Serious: No
  Sender: FDA-Public Use
  Company Number: FR-ROCHE-1717710

PATIENT
  Sex: Female

DRUGS (4)
  1. ROACTEMRA [Suspect]
     Active Substance: TOCILIZUMAB
     Indication: RHEUMATOID ARTHRITIS
     Route: 058
     Dates: start: 2014
  2. ROACTEMRA [Suspect]
     Active Substance: TOCILIZUMAB
     Indication: RHEUMATOID ARTHRITIS
     Dosage: FOR 3 YEARS
     Route: 042
  3. CACIT D3 [Concomitant]
     Active Substance: CALCIUM\CHOLECALCIFEROL
     Route: 048
  4. OPTRUMA [Concomitant]
     Active Substance: RALOXIFENE HYDROCHLORIDE
     Route: 048

REACTIONS (1)
  - Diarrhoea [Unknown]

NARRATIVE: CASE EVENT DATE: 201602
